FAERS Safety Report 5407275-0 (Version None)
Quarter: 2007Q3

REPORT INFORMATION
  Report Type: 
  Country: None (occurrence: None)
  Receive Date: 20070807
  Receipt Date: 20070726
  Transmission Date: 20080115
  Serious: Yes (Other)
  Sender: FDA-Public Use
  Company Number: SE-SANOFI-SYNTHELABO-A01200708343

PATIENT
  Age: 64 Year
  Sex: Male

DRUGS (3)
  1. ALCOHOL [Concomitant]
     Dosage: UNK
     Route: 048
  2. ZOLPIDEM TARTRATE [Suspect]
     Indication: ANXIETY
     Route: 048
  3. ZOLPIDEM TARTRATE [Suspect]
     Indication: STRESS
     Route: 048

REACTIONS (1)
  - ROAD TRAFFIC ACCIDENT [None]
